FAERS Safety Report 7928424-6 (Version None)
Quarter: 2011Q4

REPORT INFORMATION
  Report Type: 
  Country: None (occurrence: None)
  Receive Date: 20111118
  Receipt Date: 20111109
  Transmission Date: 20120403
  Serious: Yes (Other)
  Sender: FDA-Public Use
  Company Number: PHHY2011DE099121

PATIENT
  Sex: Female

DRUGS (3)
  1. CYCLOSPORINE [Suspect]
     Indication: RENAL TRANSPLANT
  2. MYCOPHENOLATE MOFETIL [Concomitant]
     Indication: RENAL TRANSPLANT
  3. PREDNISOLONE [Concomitant]

REACTIONS (7)
  - HYPERTENSION [None]
  - KIDNEY TRANSPLANT REJECTION [None]
  - GLOMERULONEPHRITIS [None]
  - MALIGNANT HYPERTENSION [None]
  - HYPERTENSIVE ENCEPHALOPATHY [None]
  - BLOOD CREATININE INCREASED [None]
  - CAPILLARITIS [None]
